FAERS Safety Report 13514999 (Version 2)
Quarter: 2017Q2

REPORT INFORMATION
  Report Type: Spontaneous
  Country: IL (occurrence: IL)
  Receive Date: 20170504
  Receipt Date: 20170629
  Transmission Date: 20170830
  Serious: Yes (Death, Hospitalization, Other)
  Sender: FDA-Public Use
  Company Number: IL-GLAXOSMITHKLINE-IL2017GSK062494

PATIENT
  Age: 32 Year
  Sex: Male
  Weight: 46 kg

DRUGS (2)
  1. BENLYSTA [Suspect]
     Active Substance: BELIMUMAB
     Indication: SYSTEMIC LUPUS ERYTHEMATOSUS
     Dosage: UNK
     Dates: start: 2016
  2. DEPO-MEDROL [Suspect]
     Active Substance: METHYLPREDNISOLONE ACETATE
     Indication: PRODUCT USED FOR UNKNOWN INDICATION

REACTIONS (11)
  - Dyspnoea [Fatal]
  - Infection [Unknown]
  - Respiratory disorder [Unknown]
  - Lung infection [Not Recovered/Not Resolved]
  - Lung infiltration [Fatal]
  - Oesophageal candidiasis [Unknown]
  - Haematemesis [Unknown]
  - Chest pain [Unknown]
  - Decubitus ulcer [Unknown]
  - Respiratory failure [Fatal]
  - Mobility decreased [Unknown]
